FAERS Safety Report 8245542-6 (Version None)
Quarter: 2012Q1

REPORT INFORMATION
  Report Type: 
  Country: None (occurrence: None)
  Receive Date: 20120329
  Receipt Date: 20120320
  Transmission Date: 20120608
  Serious: Yes (Other)
  Sender: FDA-Public Use
  Company Number: US-ASTRAZENECA-2012SE19345

PATIENT
  Sex: Male

DRUGS (4)
  1. PRILOSEC [Suspect]
     Route: 048
  2. PRILOSEC [Suspect]
     Route: 048
  3. NEXIUM [Suspect]
     Route: 048
  4. TAGAMET [Concomitant]

REACTIONS (4)
  - ULCER [None]
  - ULCER HAEMORRHAGE [None]
  - DRUG INEFFECTIVE [None]
  - DRUG DOSE OMISSION [None]
